FAERS Safety Report 4977644-1 (Version None)
Quarter: 2006Q2

REPORT INFORMATION
  Report Type: 
  Country: None (occurrence: None)
  Receive Date: 20060420
  Receipt Date: 20051101
  Transmission Date: 20061013
  Serious: No
  Sender: FDA-Public Use
  Company Number: US-GLAXOSMITHKLINE-A0580499A

PATIENT
  Age: 54 Year
  Sex: Male

DRUGS (2)
  1. LITHIUM CARBONATE [Suspect]
     Dosage: 750MG TWICE PER DAY
     Route: 048
     Dates: start: 20050801
  2. VERAPAMIL [Concomitant]

REACTIONS (2)
  - ASTHENIA [None]
  - DYSPEPSIA [None]
